FAERS Safety Report 8361917-9 (Version None)
Quarter: 2012Q2

REPORT INFORMATION
  Report Type: 
  Country: None (occurrence: None)
  Receive Date: 20120515
  Receipt Date: 20120503
  Transmission Date: 20120825
  Serious: Yes (Hospitalization)
  Sender: FDA-Public Use
  Company Number: GB-TEVA-336199ISR

PATIENT
  Sex: Male

DRUGS (5)
  1. LOSARTAN POTASSIUM [Suspect]
     Route: 048
  2. BISOPROLOL FUMARATE [Concomitant]
  3. LOSARTAN POTASSIUM [Suspect]
     Indication: BLOOD PRESSURE
     Route: 048
  4. ASPIRIN [Suspect]
  5. ISOSORBIDE MONONITRATE [Concomitant]

REACTIONS (3)
  - TINNITUS [None]
  - ABDOMINAL DISCOMFORT [None]
  - FAECES DISCOLOURED [None]
